FAERS Safety Report 9852633 (Version 1)
Quarter: 2014Q1

REPORT INFORMATION
  Report Type: Spontaneous
  Country: US (occurrence: US)
  Receive Date: 20140129
  Receipt Date: 20140129
  Transmission Date: 20141002
  Serious: No
  Sender: FDA-Public Use
  Company Number: US-009507513-1401USA009964

PATIENT
  Age: 29 Year
  Sex: Female

DRUGS (2)
  1. CLARITIN-D-12 [Suspect]
     Indication: RESPIRATORY TRACT CONGESTION
     Dosage: UNK, UNKNOWN
     Route: 048
  2. CLARITIN-D-12 [Suspect]
     Indication: HYPERSENSITIVITY

REACTIONS (1)
  - Drug effect decreased [Unknown]
